FAERS Safety Report 9808442 (Version 2)
Quarter: 2014Q1

REPORT INFORMATION
  Report Type: Spontaneous
  Country: FI (occurrence: FI)
  Receive Date: 20140110
  Receipt Date: 20140130
  Transmission Date: 20141002
  Serious: Yes (Life-Threatening, Hospitalization)
  Sender: FDA-Public Use
  Company Number: FI-B.I. PHARMACEUTICALS,INC./RIDGEFIELD-2014-BI-00889SF

PATIENT
  Age: 60 Year
  Sex: Female

DRUGS (4)
  1. PRADAXA [Suspect]
     Indication: HEART VALVE OPERATION
     Dosage: 300 MG
     Dates: start: 201311, end: 20140108
  2. PRADAXA [Suspect]
     Indication: TRANSIENT ISCHAEMIC ATTACK
  3. BISOPROLOL [Concomitant]
     Dosage: 5 MG
  4. ATORVASTATIN [Concomitant]
     Dosage: 10 MG

REACTIONS (10)
  - Hemiplegia [Not Recovered/Not Resolved]
  - Cerebral artery occlusion [Not Recovered/Not Resolved]
  - Hemisensory neglect [Not Recovered/Not Resolved]
  - Dysarthria [Not Recovered/Not Resolved]
  - Speech disorder [Not Recovered/Not Resolved]
  - Eye movement disorder [Not Recovered/Not Resolved]
  - Intracardiac thrombus [Not Recovered/Not Resolved]
  - Cerebral infarction [Not Recovered/Not Resolved]
  - Off label use [Unknown]
  - Off label use [Unknown]
